FAERS Safety Report 10243036 (Version 1)
Quarter: 2014Q2

REPORT INFORMATION
  Report Type: Not Available
  Country: GB (occurrence: GB)
  Receive Date: 20140618
  Receipt Date: 20140618
  Transmission Date: 20141212
  Serious: Yes (Life-Threatening, Hospitalization)
  Sender: FDA-Public Use
  Company Number: GB-BEH-2014043093

PATIENT
  Age: 57 Year
  Sex: Male
  Weight: 90 kg

DRUGS (11)
  1. IMMUNOGLOBULIN [Suspect]
     Route: 042
  2. IMMUNOGLOBULIN [Suspect]
     Route: 042
     Dates: start: 20140329, end: 20140402
  3. VIGAM [Suspect]
     Indication: CHRONIC INFLAMMATORY DEMYELINATING POLYRADICULONEUROPATHY
     Route: 042
     Dates: start: 20140520, end: 20140522
  4. ADCAL-D3 [Concomitant]
  5. ALENDRONIC ACID [Concomitant]
  6. AZATHIOPRIN [Concomitant]
  7. CYCLIZINE [Concomitant]
  8. LANSOPRAZOLE [Concomitant]
  9. PREDNISOLONE [Concomitant]
  10. PREGABALIN [Concomitant]
  11. SYMBICORT [Concomitant]

REACTIONS (2)
  - Cardiac failure acute [Unknown]
  - Pulmonary embolism [Recovering/Resolving]
